FAERS Safety Report 7434741-9 (Version None)
Quarter: 2011Q2

REPORT INFORMATION
  Report Type: 
  Country: None (occurrence: None)
  Receive Date: 20110425
  Receipt Date: 20110413
  Transmission Date: 20111010
  Serious: Yes (Hospitalization)
  Sender: FDA-Public Use
  Company Number: US-ELI_LILLY_AND_COMPANY-US201104004161

PATIENT
  Sex: Male

DRUGS (31)
  1. HYDRALAZINE [Concomitant]
  2. HYDROMORPHONE [Concomitant]
  3. LEVOFLOXACIN [Concomitant]
  4. PROMETHAZINE [Concomitant]
  5. CLONIDINE [Concomitant]
  6. FLUTICASONE PROPIONATE [Concomitant]
  7. GUAIFENESIN [Concomitant]
  8. MILK OF MAGNESIA TAB [Concomitant]
  9. MIDAZOLAM [Concomitant]
  10. NIACIN [Concomitant]
  11. ONDANSETRON [Concomitant]
  12. ZOLPIDEM [Concomitant]
  13. CYMBALTA [Suspect]
     Dosage: 60 MG, UNK
  14. ASPIRIN [Concomitant]
  15. ALBUTEROL [Concomitant]
  16. METHYLPREDNISOLONE [Concomitant]
  17. PANTOPRAZOLE [Concomitant]
  18. CAMPRAL [Concomitant]
  19. MUCOMYST [Concomitant]
  20. DOCUSATE [Concomitant]
  21. HYDROCODONE [Concomitant]
  22. ALLOPURINOL [Concomitant]
  23. BISACODYL [Concomitant]
  24. HEPARIN [Concomitant]
  25. PHENYLEPHRINE HCL [Concomitant]
  26. TYLENOL                                 /SCH/ [Concomitant]
  27. ALPRAZOLAM [Concomitant]
  28. FOLIC ACID [Concomitant]
  29. MULTI-VITAMIN [Concomitant]
  30. LOVAZA [Concomitant]
  31. PROPRANOLOL [Concomitant]

REACTIONS (2)
  - LUNG NEOPLASM MALIGNANT [None]
  - GASTROINTESTINAL TUBE INSERTION [None]
